FAERS Safety Report 8810409 (Version 1)
Quarter: 2012Q4

REPORT INFORMATION
  Report Type: Report from Study
  Country: DE (occurrence: DE)
  Receive Date: 20120926
  Receipt Date: 20120926
  Transmission Date: 20130627
  Serious: Yes (Hospitalization)
  Sender: FDA-Public Use
  Company Number: DE-009507513-1209DNK005079

PATIENT
  Age: 70 Year
  Sex: Male

DRUGS (10)
  1. HYDROCHLOROTHIAZIDE [Suspect]
     Route: 048
  2. FUROSEMIDE [Suspect]
     Route: 048
  3. APIDRA [Concomitant]
     Indication: TYPE 2 DIABETES MELLITUS
     Dosage: 120 IU, UNK
  4. LANTUS [Concomitant]
     Indication: TYPE 2 DIABETES MELLITUS
     Dosage: 26 IU, UNK
  5. RADIOGRAPHIC CONTRAST MEDIUM (UNSPECIFIED) [Suspect]
  6. ASPIRIN [Concomitant]
  7. TRIMETAZIDINE HYDROCHLORIDE [Concomitant]
  8. RANOLAZINE HYDROCHLORIDE [Concomitant]
  9. IVABRADINE [Concomitant]
  10. NICORANDIL [Concomitant]

REACTIONS (2)
  - Renal failure acute [Recovered/Resolved]
  - Orthostatic intolerance [Recovered/Resolved]
